FAERS Safety Report 8614850-9 (Version None)
Quarter: 2012Q3

REPORT INFORMATION
  Report Type: 
  Country: None (occurrence: None)
  Receive Date: 20120823
  Receipt Date: 20120613
  Transmission Date: 20120928
  Serious: No
  Sender: FDA-Public Use
  Company Number: US-BRISTOL-MYERS SQUIBB COMPANY-16511602

PATIENT
  Age: 52 Year
  Sex: Male
  Weight: 74 kg

DRUGS (2)
  1. KOMBIGLYZE XR [Suspect]
     Dosage: 1 DF = KOMBIGLYZE XR 2.5/1000 MG TAB
  2. METFORMIN HCL [Suspect]
     Dosage: 1DF: 2TABS

REACTIONS (3)
  - ASTHENIA [None]
  - MUSCLE SPASMS [None]
  - MYALGIA [None]
